FAERS Safety Report 12614789 (Version 2)
Quarter: 2016Q3

REPORT INFORMATION
  Report Type: Spontaneous
  Country: US (occurrence: US)
  Receive Date: 20160802
  Receipt Date: 20160811
  Transmission Date: 20161109
  Serious: Yes (Hospitalization, Other)
  Sender: FDA-Public Use
  Company Number: US-GLAXOSMITHKLINE-US2016109252

PATIENT
  Age: 74 Year
  Sex: Female

DRUGS (8)
  1. ADVAIR DISKUS [Suspect]
     Active Substance: FLUTICASONE PROPIONATE\SALMETEROL XINAFOATE
     Indication: EMPHYSEMA
  2. METOPROLOL. [Concomitant]
     Active Substance: METOPROLOL
  3. SPIRIVA [Concomitant]
     Active Substance: TIOTROPIUM BROMIDE MONOHYDRATE
  4. FUROSEMIDE. [Concomitant]
     Active Substance: FUROSEMIDE
  5. PRAVASTATIN. [Concomitant]
     Active Substance: PRAVASTATIN
  6. ADVAIR DISKUS [Suspect]
     Active Substance: FLUTICASONE PROPIONATE\SALMETEROL XINAFOATE
     Indication: CHRONIC OBSTRUCTIVE PULMONARY DISEASE
     Dosage: 1 PUFF(S), BID
     Route: 055
  7. ALPRAZOLAM. [Concomitant]
     Active Substance: ALPRAZOLAM
  8. LORATADINE. [Concomitant]
     Active Substance: LORATADINE

REACTIONS (8)
  - Heart valve replacement [Recovered/Resolved]
  - Cardiac disorder [Unknown]
  - Myocardial infarction [Recovered/Resolved]
  - Coronary arterial stent insertion [Recovered/Resolved]
  - Hospitalisation [Unknown]
  - Cardiac operation [Recovered/Resolved]
  - Cardiac pacemaker insertion [Unknown]
  - Dyspnoea [Recovering/Resolving]

NARRATIVE: CASE EVENT DATE: 2014
